FAERS Safety Report 11596153 (Version 1)
Quarter: 2015Q4

REPORT INFORMATION
  Report Type: Spontaneous
  Country: US (occurrence: None)
  Receive Date: 20151005
  Receipt Date: 20151005
  Transmission Date: 20160304
  Serious: Yes (Other)
  Sender: FDA-Public Use
  Company Number: None

PATIENT
  Age: 46 Year
  Sex: Male
  Weight: 72.58 kg

DRUGS (2)
  1. LYRICA [Suspect]
     Active Substance: PREGABALIN
     Indication: NEURALGIA
     Dosage: 1-3 PILLS, AT BEDTIME, TAKEN BY MOUTH
  2. AMNITRIPTYLINE 25 MG [Concomitant]

REACTIONS (2)
  - Hallucination [None]
  - Panic attack [None]

NARRATIVE: CASE EVENT DATE: 20151003
